FAERS Safety Report 11857585 (Version 1)
Quarter: 2015Q4

REPORT INFORMATION
  Report Type: Spontaneous
  Country: ES (occurrence: ES)
  Receive Date: 20151221
  Receipt Date: 20151221
  Transmission Date: 20160305
  Serious: Yes (Other)
  Sender: FDA-Public Use
  Company Number: ES-IMPAX LABORATORIES, INC-2015-IPXL-01295

PATIENT
  Age: 48 Year
  Sex: Female

DRUGS (2)
  1. OLANZAPINE. [Suspect]
     Active Substance: OLANZAPINE
     Indication: SUICIDE ATTEMPT
     Dosage: 300 MG, UNK
     Route: 065
  2. DIVALPROEX SODIUM ER [Suspect]
     Active Substance: DIVALPROEX SODIUM
     Indication: SUICIDE ATTEMPT
     Dosage: UNK
     Route: 048

REACTIONS (14)
  - Rhabdomyolysis [Unknown]
  - Renal failure [Unknown]
  - Blood lactic acid increased [Unknown]
  - Bone marrow disorder [Unknown]
  - Toxicity to various agents [Unknown]
  - Hypocalcaemia [Unknown]
  - Overdose [Unknown]
  - Hypernatraemia [Unknown]
  - Hypokalaemia [Unknown]
  - Hyperammonaemia [Unknown]
  - Hypotension [Unknown]
  - Tachycardia [Unknown]
  - Depressed level of consciousness [Unknown]
  - Hypothermia [Unknown]
